FAERS Safety Report 5154409-1 (Version None)
Quarter: 2006Q4

REPORT INFORMATION
  Report Type: 
  Country: None (occurrence: None)
  Receive Date: 20061114
  Receipt Date: 20061031
  Transmission Date: 20070319
  Serious: Yes (Hospitalization)
  Sender: FDA-Public Use
  Company Number: A-JP2006-13395

PATIENT
  Age: 60 Year
  Sex: Female

DRUGS (9)
  1. TRACLEER [Suspect]
     Indication: PULMONARY HYPERTENSION
     Dosage: 62.5 MG BID ORAL
     Route: 048
     Dates: start: 20060805, end: 20061023
  2. PENICILLAMINE [Suspect]
     Dates: end: 20061023
  3. PRAVASTATIN [Concomitant]
  4. DEXTROMETHORPHAN HYDROBROMIDE [Concomitant]
  5. CODEINE PHOSPHATE [Concomitant]
  6. CLARITHROMYCIN [Concomitant]
  7. CALCITRIOL [Concomitant]
  8. SERRAPEPTASE [Concomitant]
  9. LANSOPRAZOLE [Concomitant]

REACTIONS (1)
  - EOSINOPHILIC PNEUMONIA [None]
